FAERS Safety Report 8981426 (Version 1)
Quarter: 2012Q4

REPORT INFORMATION
  Report Type: 
  Country: US (occurrence: US)
  Receive Date: 20121221
  Receipt Date: 20121221
  Transmission Date: 20130627
  Serious: Yes (Hospitalization)
  Sender: FDA-Public Use
  Company Number: US-EISAI INC-E2090-02456-SPO-US

PATIENT
  Age: 45 Year
  Sex: Female

DRUGS (2)
  1. ZONEGRAN [Suspect]
     Indication: SEIZURE
     Route: 048
     Dates: start: 201208, end: 201210
  2. COMPLERA [Concomitant]
     Indication: HIV POSITIVE

REACTIONS (5)
  - Abscess [Unknown]
  - Burning sensation [Unknown]
  - Syncope [Recovered/Resolved]
  - Parosmia [Unknown]
  - Anhidrosis [Not Recovered/Not Resolved]
